FAERS Safety Report 22116849 (Version 2)
Quarter: 2023Q2

REPORT INFORMATION
  Report Type: Spontaneous
  Country: US (occurrence: US)
  Receive Date: 20230320
  Receipt Date: 20230403
  Transmission Date: 20230721
  Serious: No
  Sender: FDA-Public Use
  Company Number: US-Millicent Holdings Ltd.-MILL20230075

PATIENT
  Age: 39 Year
  Sex: Female

DRUGS (2)
  1. FEMRING [Suspect]
     Active Substance: ESTRADIOL ACETATE
     Indication: Hormone replacement therapy
     Dosage: 0.05 MG / DAY, CHANGING OUT EVERY 10 WEEKS
     Route: 067
     Dates: start: 20230212
  2. FEMRING [Suspect]
     Active Substance: ESTRADIOL ACETATE
     Dosage: 0.05 MG / DAY, CHANGING OUT EVERY 10 WEEKS
     Route: 067

REACTIONS (5)
  - Fungal infection [Recovered/Resolved]
  - Urethritis noninfective [Recovered/Resolved]
  - Vulvovaginal discomfort [Recovered/Resolved]
  - Drug effect less than expected [Not Recovered/Not Resolved]
  - Inappropriate schedule of product administration [None]

NARRATIVE: CASE EVENT DATE: 20230214
